FAERS Safety Report 10697088 (Version 2)
Quarter: 2015Q1

REPORT INFORMATION
  Report Type: Spontaneous
  Country: US (occurrence: US)
  Receive Date: 20150108
  Receipt Date: 20150113
  Transmission Date: 20150721
  Serious: Yes (Hospitalization)
  Sender: FDA-Public Use
  Company Number: US-HORIZON-ACT-0001-2015

PATIENT
  Age: 69 Year
  Sex: Male

DRUGS (4)
  1. ACTIMMUNE [Suspect]
     Active Substance: INTERFERON GAMMA-1B
     Indication: PULMONARY FIBROSIS
     Dates: start: 2007
  2. SULFATE MEDICATION [Concomitant]
  3. UNSPECIFIED LUNG MEDICATION [Concomitant]
  4. TUSSIONEX PENNKINETIC [Concomitant]
     Active Substance: CHLORPHENIRAMINE\HYDROCODONE

REACTIONS (5)
  - Loss of consciousness [Unknown]
  - Hip fracture [Unknown]
  - Dehydration [Unknown]
  - Fall [Unknown]
  - Off label use [Unknown]

NARRATIVE: CASE EVENT DATE: 20141230
